FAERS Safety Report 8175912-6 (Version None)
Quarter: 2012Q1

REPORT INFORMATION
  Report Type: 
  Country: None (occurrence: None)
  Receive Date: 20120301
  Receipt Date: 20120227
  Transmission Date: 20120608
  Serious: Yes (Other)
  Sender: FDA-Public Use
  Company Number: US-PFIZER INC-2012037221

PATIENT
  Sex: Male
  Weight: 79.365 kg

DRUGS (2)
  1. CHANTIX [Suspect]
     Dosage: 1 MG, 2X/DAY
     Route: 048
     Dates: start: 20120101, end: 20120201
  2. CHANTIX [Suspect]
     Indication: SMOKING CESSATION THERAPY
     Dosage: 0.5 MG, 1X/DAY
     Route: 048
     Dates: start: 20120119, end: 20120101

REACTIONS (5)
  - FATIGUE [None]
  - MIDDLE INSOMNIA [None]
  - COLD SWEAT [None]
  - DEPRESSION [None]
  - INSOMNIA [None]
